FAERS Safety Report 9795076 (Version 2)
Quarter: 2014Q1

REPORT INFORMATION
  Report Type: Report from Study
  Country: JP (occurrence: JP)
  Receive Date: 20140103
  Receipt Date: 20140325
  Transmission Date: 20141002
  Serious: No
  Sender: FDA-Public Use
  Company Number: JP-ROCHE-1326604

PATIENT
  Age: 71 Year
  Sex: Female

DRUGS (13)
  1. METHOXY POLYETHYLENE GLYCOL-EPOETIN BETA [Suspect]
     Indication: NEPHROGENIC ANAEMIA
     Route: 058
     Dates: start: 20130513
  2. FEBURIC [Suspect]
     Indication: DIABETIC NEPHROPATHY
     Route: 048
     Dates: start: 20130513, end: 20131225
  3. TAKEPRON [Concomitant]
     Route: 048
  4. BAYASPIRIN [Concomitant]
     Route: 048
  5. TANATRIL [Concomitant]
     Route: 048
  6. ATELEC [Concomitant]
     Route: 048
  7. LIVALO [Concomitant]
     Route: 048
  8. MICARDIS [Concomitant]
     Route: 048
  9. DAIKENCHUTO [Concomitant]
     Route: 048
  10. KREMEZIN [Concomitant]
     Route: 048
  11. PURSENNID [Concomitant]
     Route: 048
     Dates: start: 20130812
  12. PANTETHINE [Concomitant]
     Dosage: REPORTED AS PANTOSIN
     Route: 048
     Dates: end: 20130812
  13. LAC-B [Concomitant]
     Route: 048
     Dates: end: 20130812

REACTIONS (1)
  - Blood uric acid decreased [Recovered/Resolved]
